FAERS Safety Report 4590530-4 (Version None)
Quarter: 2005Q1

REPORT INFORMATION
  Report Type: 
  Country: None (occurrence: None)
  Receive Date: 20050224
  Receipt Date: 20050214
  Transmission Date: 20050727
  Serious: Yes (Other)
  Sender: FDA-Public Use
  Company Number: HU-ROCHE-395363

PATIENT
  Age: 9 Year
  Sex: Male

DRUGS (2)
  1. CEFTRIAXONE SODIUM [Suspect]
     Indication: RESPIRATORY TRACT INFECTION
     Route: 042
  2. STEROID NOS [Concomitant]
     Indication: OEDEMA

REACTIONS (6)
  - ANURIA [None]
  - CHOLELITHIASIS [None]
  - HAEMATURIA [None]
  - NEPHROLITHIASIS [None]
  - PROTHROMBIN LEVEL DECREASED [None]
  - RENAL FAILURE [None]
